FAERS Safety Report 14785362 (Version 1)
Quarter: 2018Q2

REPORT INFORMATION
  Report Type: Spontaneous
  Country: US (occurrence: US)
  Receive Date: 20180420
  Receipt Date: 20180420
  Transmission Date: 20180711
  Serious: No
  Sender: FDA-Public Use
  Company Number: US-DUCHESNAY INC.-2017US017671

PATIENT
  Age: 60 Year
  Sex: Female

DRUGS (2)
  1. OSPHENA [Suspect]
     Active Substance: OSPEMIFENE
     Indication: PRODUCT USED FOR UNKNOWN INDICATION
     Dosage: 60 MG, DAILY
     Route: 065
     Dates: start: 201610, end: 20170214
  2. OSPHENA [Suspect]
     Active Substance: OSPEMIFENE
     Dosage: 30 MG, QD (1 PILL CUT IN HALF)
     Dates: start: 20170214, end: 20170501

REACTIONS (4)
  - Vaginal discharge [Recovered/Resolved]
  - Prescribed underdose [Unknown]
  - Weight increased [Not Recovered/Not Resolved]
  - Wrong technique in product usage process [Unknown]

NARRATIVE: CASE EVENT DATE: 201612
